FAERS Safety Report 7014224-0 (Version None)
Quarter: 2010Q3

REPORT INFORMATION
  Report Type: 
  Country: None (occurrence: None)
  Receive Date: 20100927
  Receipt Date: 20100915
  Transmission Date: 20110219
  Serious: Yes (Other)
  Sender: FDA-Public Use
  Company Number: JP-JNJFOC-20100806895

PATIENT

DRUGS (4)
  1. DUROTEP MT [Suspect]
     Indication: CANCER PAIN
     Route: 062
  2. DECADRON [Concomitant]
     Route: 065
  3. EXCEGRAN [Concomitant]
     Route: 065
  4. SEROQUEL [Concomitant]
     Route: 065

REACTIONS (2)
  - DYSPNOEA [None]
  - RESPIRATORY DEPRESSION [None]
